FAERS Safety Report 9550715 (Version 1)
Quarter: 2013Q3

REPORT INFORMATION
  Report Type: Spontaneous
  Country: US (occurrence: US)
  Receive Date: 20130924
  Receipt Date: 20130924
  Transmission Date: 20140515
  Serious: No
  Sender: FDA-Public Use
  Company Number: US-SANOFI-AVENTIS-2013SA019799

PATIENT
  Age: 46 Year
  Sex: Female

DRUGS (6)
  1. AUBAGIO [Suspect]
     Indication: MULTIPLE SCLEROSIS
     Route: 048
     Dates: start: 20130107, end: 20130220
  2. BACLOFEN [Concomitant]
  3. OXYBUTYNIN [Concomitant]
  4. PLAVIX [Concomitant]
  5. VITAMIN D [Concomitant]
     Dosage: DOSE:1000 UNIT(S)
  6. ASPIRIN [Concomitant]

REACTIONS (2)
  - Urinary tract infection [Unknown]
  - Drug dose omission [Unknown]
